FAERS Safety Report 7512766-2 (Version None)
Quarter: 2011Q2

REPORT INFORMATION
  Report Type: 
  Country: None (occurrence: None)
  Receive Date: 20110531
  Receipt Date: 20110517
  Transmission Date: 20111010
  Serious: Yes (Hospitalization)
  Sender: FDA-Public Use
  Company Number: A0929192A

PATIENT
  Sex: Male

DRUGS (9)
  1. RETROVIR [Suspect]
     Dosage: 12.5ML TWICE PER DAY
     Dates: start: 20100801
  2. UNSPECIFIED MEDICATION [Concomitant]
     Dosage: 5DROP THREE TIMES PER DAY
  3. EUTIROX [Concomitant]
     Dosage: 75MCG PER DAY
     Dates: start: 20090301
  4. KALETRA [Concomitant]
  5. EPIVIR [Suspect]
     Indication: HIV INFECTION
     Route: 065
  6. RETROVIR [Suspect]
     Indication: HIV INFECTION
     Route: 065
     Dates: end: 20090301
  7. ZIAGEN [Suspect]
     Indication: HIV INFECTION
     Route: 065
  8. VIRAMUNE [Concomitant]
  9. ZERIT [Suspect]
     Indication: HIV INFECTION
     Route: 065
     Dates: end: 20100801

REACTIONS (8)
  - WHITE BLOOD CELL DISORDER [None]
  - ANAEMIA [None]
  - TUBERCULOSIS [None]
  - PRODUCT ODOUR ABNORMAL [None]
  - TRANSAMINASES INCREASED [None]
  - DRUG INEFFECTIVE [None]
  - PRODUCT QUALITY ISSUE [None]
  - CD4 LYMPHOCYTES DECREASED [None]
